FAERS Safety Report 5269400-4 (Version None)
Quarter: 2007Q1

REPORT INFORMATION
  Report Type: 
  Country: None (occurrence: None)
  Receive Date: 20070320
  Receipt Date: 20070308
  Transmission Date: 20070707
  Serious: Yes (Other)
  Sender: FDA-Public Use
  Company Number: DK-JNJFOC-20070302198

PATIENT
  Age: 35 Year
  Sex: Female

DRUGS (6)
  1. REMICADE [Suspect]
     Indication: ARTHRITIS
     Dosage: STANDARD DOSE
     Route: 042
  2. AZATHIPRINE [Concomitant]
     Indication: DRUG USE FOR UNKNOWN INDICATION
  3. ETANERCEPT [Concomitant]
  4. DMARD [Concomitant]
  5. DMARD [Concomitant]
  6. DMARD [Concomitant]

REACTIONS (3)
  - NIGHT SWEATS [None]
  - THYMUS ENLARGEMENT [None]
  - WEIGHT DECREASED [None]
